FAERS Safety Report 4897734-1 (Version None)
Quarter: 2006Q1

REPORT INFORMATION
  Report Type: 
  Country: None (occurrence: None)
  Receive Date: 20060130
  Receipt Date: 20060130
  Transmission Date: 20060701
  Serious: Yes (Other)
  Sender: FDA-Public Use
  Company Number: None

PATIENT
  Age: 78 Year
  Sex: Male
  Weight: 68.5 kg

DRUGS (34)
  1. METFORMIN [Suspect]
  2. ASPIRIN [Concomitant]
  3. CARVEDILOL [Concomitant]
  4. CEPHALEXIN [Concomitant]
  5. DIGOXIN [Concomitant]
  6. GLIPIZIDE [Concomitant]
  7. HCTZ 12.5/LISINOPRIL 10MG [Concomitant]
  8. HYDROCODONE 5/ACETAMINOPHEN 500MG [Concomitant]
  9. METFORMIN HCL [Concomitant]
  10. NITROGLYCERIN [Concomitant]
  11. SERTRALINE HCL [Concomitant]
  12. NPH INSULIN [Concomitant]
  13. GLIPIZIDE [Concomitant]
  14. GUAIFENESIN [Concomitant]
  15. ACETAMINOPHEN AND HYDROCODONE BITARTRATE [Concomitant]
  16. ASPIRIN [Concomitant]
  17. CAPSAICIN 0.075% [Concomitant]
  18. CEPHALEXIN [Concomitant]
  19. DIGOXIN [Concomitant]
  20. CARVEDILOL [Concomitant]
  21. MILK OF MAGNESIA TAB [Concomitant]
  22. SIMVASTATIN [Concomitant]
  23. ACETAMINOPHEN [Concomitant]
  24. PSYLLIUM SUGAR FREE POWDER [Concomitant]
  25. QUININE SULFATE [Concomitant]
  26. TRAVOPROST SOLN [Concomitant]
  27. CYANOCOBALAMIN INJ [Concomitant]
  28. TRAZODONE [Concomitant]
  29. SERTRALINE [Concomitant]
  30. OMEPRAZOLE [Concomitant]
  31. LORATADINE [Concomitant]
  32. HYDROCHLOROTHIAZIDE/LISINOPRIL [Concomitant]
  33. FLUNISOLIDE INHL [Concomitant]
  34. IPRATROPIUM 0.5MG/2.5 [Concomitant]

REACTIONS (2)
  - NAUSEA [None]
  - VOMITING [None]
